FAERS Safety Report 6155970-0 (Version None)
Quarter: 2009Q2

REPORT INFORMATION
  Report Type: 
  Country: None (occurrence: None)
  Receive Date: 20090415
  Receipt Date: 20090331
  Transmission Date: 20091009
  Serious: Yes (Other)
  Sender: FDA-Public Use
  Company Number: US-ROCHE-623929

PATIENT
  Sex: Male
  Weight: 82.1 kg

DRUGS (1)
  1. ISOTRETINOIN [Suspect]
     Indication: ACNE
     Dosage: 29TH DOSE OF ISOTRETINOIN ON 17 MAR 09.
     Route: 065
     Dates: start: 20090217, end: 20090317

REACTIONS (9)
  - ASTHENIA [None]
  - CHROMATURIA [None]
  - HEADACHE [None]
  - MALAISE [None]
  - NAUSEA [None]
  - NIGHT SWEATS [None]
  - RASH [None]
  - TIC [None]
  - VOMITING [None]
